FAERS Safety Report 11906248 (Version 1)
Quarter: 2016Q1

REPORT INFORMATION
  Report Type: Spontaneous
  Country: US (occurrence: None)
  Receive Date: 20160108
  Receipt Date: 20160108
  Transmission Date: 20160526
  Serious: No
  Sender: FDA-Public Use
  Company Number: None

PATIENT
  Sex: Female

DRUGS (1)
  1. INVOKANA [Suspect]
     Active Substance: CANAGLIFLOZIN

REACTIONS (6)
  - Condition aggravated [None]
  - Weight decreased [None]
  - Fibromyalgia [None]
  - Stress [None]
  - Osteoarthritis [None]
  - Blood glucose increased [None]
